FAERS Safety Report 19817971 (Version 1)
Quarter: 2021Q3

REPORT INFORMATION
  Report Type: Spontaneous
  Country: CA (occurrence: CA)
  Receive Date: 20210911
  Receipt Date: 20210911
  Transmission Date: 20211014
  Serious: Yes (Death, Hospitalization, Other)
  Sender: FDA-Public Use
  Company Number: CA-BRISTOL-MYERS SQUIBB COMPANY-BMS-2021-090415

PATIENT
  Age: 71 Year
  Sex: Female

DRUGS (4)
  1. NIVOLUMAB [Suspect]
     Active Substance: NIVOLUMAB
     Indication: NEUROENDOCRINE CARCINOMA OF THE SKIN
     Dosage: UNK
     Route: 065
  2. METFORMIN [Concomitant]
     Active Substance: METFORMIN HYDROCHLORIDE
     Indication: TYPE 2 DIABETES MELLITUS
     Route: 065
  3. IPILIMUMAB [Suspect]
     Active Substance: IPILIMUMAB
     Indication: NEUROENDOCRINE CARCINOMA OF THE SKIN
     Dosage: UNK
     Route: 065
  4. AMLODIPINE [Concomitant]
     Active Substance: AMLODIPINE BESYLATE
     Indication: HYPERTENSION
     Route: 065

REACTIONS (14)
  - Headache [Fatal]
  - Gastric ulcer [Fatal]
  - Immune-mediated enterocolitis [Fatal]
  - Malignant neoplasm progression [Fatal]
  - Hypoglossal nerve paralysis [Fatal]
  - Back pain [Fatal]
  - Hypophagia [Fatal]
  - Urinary retention [Fatal]
  - Intentional product use issue [Unknown]
  - Hypertension [Fatal]
  - Physical deconditioning [Fatal]
  - Seizure [Fatal]
  - Vomiting [Fatal]
  - Nausea [Fatal]
